FAERS Safety Report 18131280 (Version 1)
Quarter: 2020Q3

REPORT INFORMATION
  Report Type: Report from Study
  Country: US (occurrence: US)
  Receive Date: 20200810
  Receipt Date: 20200810
  Transmission Date: 20201103
  Serious: Yes (Life-Threatening, Hospitalization, Other)
  Sender: FDA-Public Use
  Company Number: US-EXELIXIS-XL18420031811

PATIENT
  Age: 36 Year
  Sex: Male
  Weight: 120 kg

DRUGS (4)
  1. IPILIMUMAB [Suspect]
     Active Substance: IPILIMUMAB
     Indication: RENAL CELL CARCINOMA
     Dosage: 1 MG/KG (ON DAY 1)
     Route: 042
     Dates: start: 20191101, end: 20191213
  2. XL184 [Suspect]
     Active Substance: CABOZANTINIB
     Indication: RENAL CELL CARCINOMA
     Dosage: 60 MG, QD
     Route: 048
     Dates: start: 20200130, end: 20200315
  3. LOVENOX [Concomitant]
     Active Substance: ENOXAPARIN SODIUM
     Dosage: UNK
  4. NIVOLUMAB [Suspect]
     Active Substance: NIVOLUMAB
     Indication: RENAL CELL CARCINOMA
     Dosage: 3 MG/KG (ON DAY 1)
     Route: 042
     Dates: start: 20191101, end: 20191213

REACTIONS (1)
  - Cerebral vasoconstriction [Recovering/Resolving]

NARRATIVE: CASE EVENT DATE: 20200315
